FAERS Safety Report 4783046-3 (Version None)
Quarter: 2005Q3

REPORT INFORMATION
  Report Type: 
  Country: None (occurrence: None)
  Receive Date: 20050914
  Receipt Date: 20050518
  Transmission Date: 20060218
  Serious: Yes (Hospitalization)
  Sender: FDA-Public Use
  Company Number: 163-20785-05050296

PATIENT
  Age: 69 Year
  Sex: Female

DRUGS (6)
  1. THALOMID [Suspect]
     Indication: MULTIPLE MYELOMA
     Dosage: 100 MG, DAILY, ORAL; 150 MG, DAILY, ORAL
     Route: 048
     Dates: start: 20050418, end: 20050501
  2. THALOMID [Suspect]
     Indication: MULTIPLE MYELOMA
     Dosage: 100 MG, DAILY, ORAL; 150 MG, DAILY, ORAL
     Route: 048
     Dates: start: 20050501, end: 20050515
  3. NAPROXEN [Concomitant]
  4. FLEXERIL [Concomitant]
  5. ZOLOFT [Concomitant]
  6. DEXAMETHASONE [Suspect]
     Indication: MULTIPLE MYELOMA

REACTIONS (2)
  - BACK PAIN [None]
  - DISEASE PROGRESSION [None]
